FAERS Safety Report 8432109-X (Version None)
Quarter: 2012Q2

REPORT INFORMATION
  Report Type: 
  Country: None (occurrence: None)
  Receive Date: 20120606
  Receipt Date: 20120521
  Transmission Date: 20120825
  Serious: Yes (Other)
  Sender: FDA-Public Use
  Company Number: FK201201441

PATIENT
  Sex: Male

DRUGS (2)
  1. FUROSEMIDE [Suspect]
     Indication: PRODUCT USED FOR UNKNOWN INDICATION
     Dosage: UNKNOWN
  2. HYDROCHLOROTHIAZIDE [Suspect]
     Indication: PRODUCT USED FOR UNKNOWN INDICATION
     Dosage: UNKNOWN

REACTIONS (6)
  - LARGE INTESTINAL HAEMORRHAGE [None]
  - GASTROINTESTINAL TRACT MUCOSAL PIGMENTATION [None]
  - SMALL INTESTINAL HAEMORRHAGE [None]
  - DIEULAFOY'S VASCULAR MALFORMATION [None]
  - RECTAL HAEMORRHAGE [None]
  - HAEMODYNAMIC INSTABILITY [None]
